FAERS Safety Report 24554168 (Version 1)
Quarter: 2024Q4

REPORT INFORMATION
  Report Type: Spontaneous
  Country: GB (occurrence: GB)
  Receive Date: 20241028
  Receipt Date: 20241028
  Transmission Date: 20250115
  Serious: Yes (Other)
  Sender: ACCORD
  Company Number: None

PATIENT
  Age: 73 Year
  Sex: Female
  Weight: 63 kg

DRUGS (7)
  1. DILTIAZEM [Suspect]
     Active Substance: DILTIAZEM
     Indication: Ill-defined disorder
     Dosage: STRENGTH: 60MG
     Dates: start: 20240918
  2. APIXABAN [Concomitant]
     Active Substance: APIXABAN
     Indication: Ill-defined disorder
     Dosage: ONE TO BE TAKEN TWICE A DAY - FOR ATRIAL FIBRIL
     Dates: start: 20170629
  3. ROSUVASTATIN [Concomitant]
     Active Substance: ROSUVASTATIN
     Indication: Ill-defined disorder
     Dosage: ONE TO BE TAKEN EACH NIGHT - FOR CHOLESTEROL
     Dates: start: 20191028
  4. RAMIPRIL [Concomitant]
     Active Substance: RAMIPRIL
     Indication: Ill-defined disorder
     Dosage: ONE TO BE TAKEN EACH NIGHT - FOR BLOOD PRESSURE
     Dates: start: 20230419
  5. DIGOXIN [Concomitant]
     Active Substance: DIGOXIN
     Indication: Ill-defined disorder
     Dosage: ONE TO BE TAKEN EACH MORNING - FOR YOUR HEART A
     Dates: start: 20230906
  6. METFORMIN [Concomitant]
     Active Substance: METFORMIN HYDROCHLORIDE
     Indication: Ill-defined disorder
     Dosage: TWO (1G) TO BE TAKEN AT NIGHT - FOR DIABETES (R)
     Dates: start: 20231110
  7. DAPAGLIFLOZIN [Concomitant]
     Active Substance: DAPAGLIFLOZIN
     Indication: Ill-defined disorder
     Dosage: ONE TO BE TAKEN EACH DAY - FOR DIABETES AND HEART
     Dates: start: 20240314

REACTIONS (1)
  - Vasculitis [Recovered/Resolved]
